FAERS Safety Report 8785077 (Version 3)
Quarter: 2013Q1

REPORT INFORMATION
  Report Type: Spontaneous
  Country: GB (occurrence: GB)
  Receive Date: 20120914
  Receipt Date: 20130117
  Transmission Date: 20140127
  Serious: Yes (Hospitalization)
  Sender: FDA-Public Use
  Company Number: GB-SANOFI-AVENTIS-2012SA066789

PATIENT
  Age: 72 Year
  Sex: Male

DRUGS (10)
  1. PLAVIX [Suspect]
     Indication: MYOCARDIAL INFARCTION
     Route: 048
     Dates: start: 20120626, end: 20120812
  2. PLAVIX [Suspect]
     Indication: MYOCARDIAL INFARCTION
     Route: 048
  3. ASPIRIN [Suspect]
     Route: 048
  4. BLINDED THERAPY [Concomitant]
     Dates: start: 20120625
  5. ATORVASTATIN [Concomitant]
     Dates: start: 20120625
  6. BISOPROLOL [Concomitant]
     Route: 048
     Dates: start: 20120626
  7. FUROSEMIDE [Concomitant]
     Route: 048
     Dates: start: 20120626
  8. PERINDOPRIL [Concomitant]
     Indication: MYOCARDIAL INFARCTION
  9. GLYCERYL TRINITRATE [Concomitant]
     Indication: ANGINA PECTORIS
     Dates: start: 20120626
  10. OMEPRAZOLE [Concomitant]
     Route: 048
     Dates: start: 20120717

REACTIONS (1)
  - Gastric haemorrhage [Recovered/Resolved]
